FAERS Safety Report 4906325-5 (Version None)
Quarter: 2006Q1

REPORT INFORMATION
  Report Type: 
  Country: None (occurrence: None)
  Receive Date: 20060207
  Receipt Date: 20060202
  Transmission Date: 20060701
  Serious: Yes (Hospitalization)
  Sender: FDA-Public Use
  Company Number: 200513789GDS

PATIENT
  Age: 65 Year
  Sex: Male
  Weight: 85 kg

DRUGS (6)
  1. AVELOX [Suspect]
     Indication: BRONCHITIS
     Dosage: 400 MG, TOTAL DAILY, ORAL
     Route: 048
     Dates: start: 20050408, end: 20050415
  2. AVELOX [Suspect]
     Indication: SINUSITIS
     Dosage: 400 MG, TOTAL DAILY, ORAL
     Route: 048
     Dates: start: 20050408, end: 20050415
  3. ACC 200 [Concomitant]
  4. LIPIDIL [Concomitant]
  5. ASPIRIN [Concomitant]
  6. ELIDEL [Concomitant]

REACTIONS (8)
  - ALOPECIA [None]
  - CHILLS [None]
  - CONDITION AGGRAVATED [None]
  - MYCOSIS FUNGOIDES [None]
  - NEURODERMATITIS [None]
  - OEDEMA [None]
  - PRURITUS [None]
  - RASH [None]
